FAERS Safety Report 22223686 (Version 1)
Quarter: 2023Q2

REPORT INFORMATION
  Report Type: Spontaneous
  Country: US (occurrence: None)
  Receive Date: 20230417
  Receipt Date: 20230417
  Transmission Date: 20230722
  Serious: Yes (Other)
  Sender: FDA-Public Use
  Company Number: None

PATIENT
  Age: 46 Year
  Sex: Female

DRUGS (1)
  1. CAPECITABINE [Suspect]
     Active Substance: CAPECITABINE
     Dosage: FREQUENCY : TWICE A DAY;?
     Route: 048

REACTIONS (6)
  - Decreased appetite [None]
  - Skin discolouration [None]
  - Nausea [None]
  - Oral pain [None]
  - Stomatitis [None]
  - Haematochezia [None]

NARRATIVE: CASE EVENT DATE: 20230317
